FAERS Safety Report 13537098 (Version 1)
Quarter: 2017Q2

REPORT INFORMATION
  Report Type: Spontaneous
  Country: US (occurrence: US)
  Receive Date: 20170511
  Receipt Date: 20170511
  Transmission Date: 20170830
  Serious: Yes (Other)
  Sender: FDA-Public Use
  Company Number: US-SA-2017SA083688

PATIENT
  Sex: Female

DRUGS (2)
  1. LANTUS SOLOSTAR [Suspect]
     Active Substance: INSULIN GLARGINE
     Indication: DIABETES MELLITUS
     Route: 051
  2. SOLOSTAR [Concomitant]
     Active Substance: DEVICE
     Indication: DIABETES MELLITUS

REACTIONS (6)
  - Altered state of consciousness [Unknown]
  - Blood glucose abnormal [Unknown]
  - Fall [Unknown]
  - Blood pressure abnormal [Unknown]
  - Asthenia [Unknown]
  - Glycosylated haemoglobin increased [Unknown]
